FAERS Safety Report 9532267 (Version 2)
Quarter: 2014Q1

REPORT INFORMATION
  Report Type: Spontaneous
  Country: US (occurrence: US)
  Receive Date: 20130918
  Receipt Date: 20140203
  Transmission Date: 20141002
  Serious: Yes (Other)
  Sender: FDA-Public Use
  Company Number: US-ROCHE-1273987

PATIENT
  Age: 61 Year
  Sex: Male

DRUGS (2)
  1. ORLISTAT [Suspect]
     Indication: WEIGHT DECREASED
     Dosage: FOR 4 YEARS
     Route: 065
  2. ORLISTAT [Suspect]
     Route: 065

REACTIONS (1)
  - Nephropathy [Unknown]
